FAERS Safety Report 8053931-8 (Version None)
Quarter: 2012Q1

REPORT INFORMATION
  Report Type: 
  Country: None (occurrence: None)
  Receive Date: 20120118
  Receipt Date: 20120106
  Transmission Date: 20120608
  Serious: Yes (Other)
  Sender: FDA-Public Use
  Company Number: US-ELI_LILLY_AND_COMPANY-US201201002818

PATIENT
  Age: 73 Year
  Sex: Male
  Weight: 111.11 kg

DRUGS (4)
  1. ADCIRCA [Suspect]
     Dosage: UNK, UNKNOWN
     Route: 065
  2. TREPROSTINIL [Concomitant]
     Indication: COR PULMONALE CHRONIC
     Dosage: 54 UG, QID
     Route: 055
     Dates: start: 20111205
  3. DIURETICS [Concomitant]
  4. COUMADIN [Concomitant]

REACTIONS (1)
  - LACRIMATION INCREASED [None]
